FAERS Safety Report 20487749 (Version 1)
Quarter: 2022Q1

REPORT INFORMATION
  Report Type: Spontaneous
  Country: US (occurrence: None)
  Receive Date: 20220218
  Receipt Date: 20220218
  Transmission Date: 20220424
  Serious: Yes (Death, Life-Threatening, Hospitalization, Other)
  Sender: FDA-Public Use
  Company Number: US-MLMSERVICE-20220202-3352438-1

PATIENT
  Age: 73 Year
  Sex: Female

DRUGS (2)
  1. AMLODIPINE [Suspect]
     Active Substance: AMLODIPINE BESYLATE
     Indication: Suicide attempt
     Dosage: UNKNOWN
     Route: 048
  2. AMLODIPINE [Suspect]
     Active Substance: AMLODIPINE BESYLATE
     Indication: Hypertension
     Route: 048

REACTIONS (16)
  - Multiple organ dysfunction syndrome [Fatal]
  - Hyperkalaemia [Fatal]
  - Agitation [Fatal]
  - Mitral valve incompetence [Fatal]
  - Visceral congestion [Fatal]
  - Hypotension [Fatal]
  - Toxicity to various agents [Fatal]
  - Leukocytosis [Fatal]
  - Mental status changes [Fatal]
  - Transaminases increased [Fatal]
  - Intentional overdose [Fatal]
  - Acute kidney injury [Fatal]
  - Bradycardia [Fatal]
  - Atrioventricular dissociation [Fatal]
  - Metabolic acidosis [Fatal]
  - Vasoplegia syndrome [Fatal]
